FAERS Safety Report 12437615 (Version 1)
Quarter: 2016Q2

REPORT INFORMATION
  Report Type: Spontaneous
  Country: US (occurrence: None)
  Receive Date: 20160603
  Receipt Date: 20160603
  Transmission Date: 20160815
  Serious: Yes (Death, Hospitalization)
  Sender: FDA-Public Use
  Company Number: None

PATIENT
  Age: 56 Year
  Sex: Female
  Weight: 68.1 kg

DRUGS (13)
  1. LACTULOSE. [Concomitant]
     Active Substance: LACTULOSE
  2. PROTONIX [Concomitant]
     Active Substance: PANTOPRAZOLE SODIUM
  3. SYNTHROID [Concomitant]
     Active Substance: LEVOTHYROXINE SODIUM
  4. VENLAFAXINE [Concomitant]
     Active Substance: VENLAFAXINE HYDROCHLORIDE
  5. ALBUTEROL NEBS [Concomitant]
  6. DEXAMETHASONE. [Concomitant]
     Active Substance: DEXAMETHASONE
  7. PROCHLORPERAZINE. [Concomitant]
     Active Substance: PROCHLORPERAZINE
  8. TAXOL [Suspect]
     Active Substance: PACLITAXEL
     Dates: end: 20130725
  9. MORPHINE [Concomitant]
     Active Substance: MORPHINE
  10. OXYCODONE [Concomitant]
     Active Substance: OXYCODONE
  11. ATIVAN [Concomitant]
     Active Substance: LORAZEPAM
  12. DULCOLAX NOS [Concomitant]
     Active Substance: BISACODYL OR DOCUSATE SODIUM
  13. LASIX [Concomitant]
     Active Substance: FUROSEMIDE

REACTIONS (2)
  - Inferior vena cava syndrome [None]
  - Ovarian cancer metastatic [None]

NARRATIVE: CASE EVENT DATE: 20160523
